FAERS Safety Report 9180708 (Version 1)
Quarter: 2013Q1

REPORT INFORMATION
  Report Type: Spontaneous
  Country: FR (occurrence: FR)
  Receive Date: 20130322
  Receipt Date: 20130322
  Transmission Date: 20140127
  Serious: Yes (Hospitalization)
  Sender: FDA-Public Use
  Company Number: FR-BAYER-2013-031921

PATIENT
  Age: 72 Year
  Sex: Male

DRUGS (3)
  1. CIFLOX [Suspect]
     Dosage: 1 DF, ONCE
     Route: 048
     Dates: start: 20130114, end: 20130114
  2. MABTHERA [Suspect]
     Dosage: 1 2 . 5 MG/M2 (375 MG/RN2 , ONCE PER MONTH
     Route: 042
     Dates: start: 20121112, end: 20130113
  3. BENDAMUSTINE HYDROCHLORIDE [Suspect]
     Dosage: 0 .0667 DF (1 DF, TWICE PER MONTH)
     Route: 042
     Dates: start: 20121112, end: 20130114

REACTIONS (3)
  - Toxic skin eruption [Recovered/Resolved]
  - Henoch-Schonlein purpura [Recovering/Resolving]
  - Pyrexia [Recovered/Resolved]
